FAERS Safety Report 12939285 (Version 4)
Quarter: 2017Q1

REPORT INFORMATION
  Report Type: Spontaneous
  Country: US (occurrence: US)
  Receive Date: 20161115
  Receipt Date: 20170321
  Transmission Date: 20170428
  Serious: No
  Sender: FDA-Public Use
  Company Number: US-PFIZER INC-2016527148

PATIENT
  Age: 73 Year
  Sex: Female
  Weight: 64 kg

DRUGS (15)
  1. VITAMIN D3 [Concomitant]
     Active Substance: CHOLECALCIFEROL
     Dosage: 1000 IU, 2X/DAY
     Route: 048
  2. PEPCID [Concomitant]
     Active Substance: FAMOTIDINE
     Dosage: 40 MG, 2X/DAY
     Route: 048
  3. MIRAPEX [Concomitant]
     Active Substance: PRAMIPEXOLE DIHYDROCHLORIDE
     Dosage: 0.125 MG, 1X/DAY, (ONE AT BEDTIME)
     Route: 048
  4. LYRICA [Suspect]
     Active Substance: PREGABALIN
     Indication: ARTHRITIS
     Dosage: 100 MG, 2X/DAY
     Route: 048
     Dates: start: 20170216
  5. XANAX [Concomitant]
     Active Substance: ALPRAZOLAM
     Dosage: 0.5 MG, UNK
     Route: 048
  6. ASPIRIN (E.C.) [Concomitant]
     Active Substance: ASPIRIN
     Dosage: 81 MG, DAILY
     Route: 048
  7. VOLTAREN [Concomitant]
     Active Substance: DICLOFENAC SODIUM
     Indication: PAIN
     Dosage: 1 G, 2X/DAY, (APPLY 1G TO LEFT KNEE UP TO BID FOR PAIN)
     Route: 061
  8. OXYCODONE [Concomitant]
     Active Substance: OXYCODONE
     Dosage: UNK
  9. LIORESAL [Concomitant]
     Active Substance: BACLOFEN
     Dosage: 20 MG, 2X/DAY
     Route: 048
  10. VITAMIN D [Concomitant]
     Active Substance: CHOLECALCIFEROL
     Dosage: 50000 IU, WEEKLY, (TAKE 1 CAPSULE BY MOUTH ONCE A WEEK)
     Route: 048
  11. LAMICTAL [Concomitant]
     Active Substance: LAMOTRIGINE
     Dosage: 25 MG, 2X/DAY
     Route: 048
  12. LYRICA [Suspect]
     Active Substance: PREGABALIN
     Indication: TRIGEMINAL NEURALGIA
     Dosage: 100 MG, 2X/DAY
     Route: 048
     Dates: start: 20161221
  13. LYRICA [Suspect]
     Active Substance: PREGABALIN
     Dosage: 75 MG, 2X/DAY
     Route: 048
  14. PENLAC [Concomitant]
     Active Substance: CICLOPIROX
     Dosage: UNK, (APPLY TOPICALLY OVER NAIL AND SURROUNDING SKIN. APPLY DAILY OVER PREVIOUS COAT. AFTER 7 DAYS,
     Route: 061
  15. ROXICODONE [Concomitant]
     Active Substance: OXYCODONE HYDROCHLORIDE
     Indication: PAIN
     Dosage: 5 MG, AS NEEDED, (TAKE 1 TABLET BY MOUTH EVERY 12 HOURS AS NEEDED FOR PAIN MUST LAST 30 DAYS)
     Route: 048

REACTIONS (6)
  - Drug dose omission [Unknown]
  - Pain [Unknown]
  - Drug effect incomplete [Unknown]
  - Pain in extremity [Unknown]
  - Vibratory sense increased [Unknown]
  - Paraesthesia [Unknown]
